FAERS Safety Report 9934205 (Version 2)
Quarter: 2014Q1

REPORT INFORMATION
  Report Type: Spontaneous
  Country: FR (occurrence: FR)
  Receive Date: 20140228
  Receipt Date: 20140320
  Transmission Date: 20141002
  Serious: Yes (Life-Threatening, Hospitalization)
  Sender: FDA-Public Use
  Company Number: FR-ASTRAZENECA-2014SE13133

PATIENT
  Age: 134 Day
  Sex: Male
  Weight: 6 kg

DRUGS (3)
  1. XYLOCAINE [Suspect]
     Indication: CIRCUMCISION
     Dosage: ONCE/SINGLE ADMINISTRATION
     Route: 058
     Dates: start: 20140126, end: 20140126
  2. VALIUM ROCHE (NON AZ PRODUCT) [Suspect]
     Route: 054
     Dates: start: 20140126, end: 20140126
  3. VALIUM ROCHE (NON AZ PRODUCT) [Suspect]
     Route: 054
     Dates: start: 20140126, end: 20140126

REACTIONS (6)
  - Overdose [Recovered/Resolved]
  - Respiratory arrest [Recovered/Resolved]
  - Grand mal convulsion [Recovered/Resolved]
  - Ventricular tachycardia [Recovered/Resolved]
  - Hypotonia [Unknown]
  - Incorrect dose administered [Recovered/Resolved]
